FAERS Safety Report 17565703 (Version 1)
Quarter: 2020Q1

REPORT INFORMATION
  Report Type: Spontaneous
  Country: US (occurrence: US)
  Receive Date: 20200320
  Receipt Date: 20200320
  Transmission Date: 20200409
  Serious: No
  Sender: FDA-Public Use
  Company Number: US-BAYER-2020-048151

PATIENT
  Age: 95 Year
  Sex: Female

DRUGS (5)
  1. CLARITIN LIQUI-GELS [Suspect]
     Active Substance: LORATADINE
     Indication: DRY SKIN
     Dosage: 1 DF
     Route: 048
     Dates: start: 20200318, end: 20200318
  2. CLARITIN LIQUI-GELS [Suspect]
     Active Substance: LORATADINE
     Indication: PRURITUS
  3. ASCORBIC ACID. [Concomitant]
     Active Substance: ASCORBIC ACID
  4. VITAMIN D [VITAMIN D NOS] [Concomitant]
     Active Substance: VITAMIN D NOS
  5. BIO ACTIVE MULTI CALCIUM [Concomitant]

REACTIONS (1)
  - Drug ineffective for unapproved indication [Unknown]
